FAERS Safety Report 8784258 (Version 1)
Quarter: 2012Q4

REPORT INFORMATION
  Report Type: Spontaneous
  Country: CH (occurrence: None)
  Receive Date: 20120830
  Receipt Date: 20120830
  Transmission Date: 20130627
  Serious: Yes (Hospitalization)
  Sender: FDA-Public Use
  Company Number: 2012080117

PATIENT
  Age: 74 Year
  Sex: Male

DRUGS (15)
  1. TOREM [Suspect]
     Route: 048
     Dates: end: 20120628
  2. TOREM [Suspect]
     Route: 048
     Dates: start: 2012
  3. DALMADORM [Suspect]
     Route: 048
  4. NOPIL FORTE [Suspect]
     Dates: start: 20120327
  5. NOPIL FORTE [Suspect]
     Route: 048
  6. ASPIRIN CARDIO (ACETYLSALICYLIC ACID) [Concomitant]
  7. BELOC Z0K (METOPROLOL SUCCINATE) [Concomitant]
  8. CRESTOR (ROSUVASTATIN CALCIUM) [Concomitant]
  9. ZYLORIC (ALLPURINOL) [Concomitant]
  10. SEROPRAM (CITALOPRAM HYDROBROMIDE) [Concomitant]
  11. PANTOZOL [Concomitant]
  12. PRADIF (TAMULOSIN HYDROCHLORIDE) [Concomitant]
  13. VITAMIN D3 [Concomitant]
  14. COSOPT (TIMOLOL MALEATE, DORZOLAMIDE HYDROCHLORIDE) [Concomitant]
  15. DAFALGAN (PARACETAMOL) [Concomitant]

REACTIONS (7)
  - Fall [None]
  - Muscular weakness [None]
  - Hypotension [None]
  - Hypovolaemia [None]
  - Renal failure acute [None]
  - Hyperkalaemia [None]
  - Hyponatraemia [None]
